FAERS Safety Report 19012406 (Version 1)
Quarter: 2021Q1

REPORT INFORMATION
  Report Type: Spontaneous
  Country: US (occurrence: US)
  Receive Date: 20210316
  Receipt Date: 20210316
  Transmission Date: 20210420
  Serious: No
  Sender: FDA-Public Use
  Company Number: None

PATIENT
  Age: 45 Year
  Sex: Male
  Weight: 98.55 kg

DRUGS (5)
  1. VITAMIN D [Concomitant]
     Active Substance: VITAMIN D NOS
  2. TURMERIC [Concomitant]
     Active Substance: HERBALS\TURMERIC
  3. SUTAB [Suspect]
     Active Substance: MAGNESIUM SULFATE\POTASSIUM CHLORIDE\SODIUM SULFATE
     Indication: COLONOSCOPY
     Dosage: ?          QUANTITY:24 CAPSULE(S);?
     Route: 048
     Dates: start: 20210315, end: 20210315
  4. PENTOPRAZOL [Concomitant]
  5. ZYRTEC [Concomitant]
     Active Substance: CETIRIZINE HYDROCHLORIDE

REACTIONS (2)
  - Tongue discolouration [None]
  - Swollen tongue [None]

NARRATIVE: CASE EVENT DATE: 20210315
